FAERS Safety Report 10403573 (Version 2)
Quarter: 2014Q3

REPORT INFORMATION
  Report Type: Report from Study
  Country: CA (occurrence: CA)
  Receive Date: 20140822
  Receipt Date: 20140904
  Transmission Date: 20150326
  Serious: Yes (Hospitalization, Other)
  Sender: FDA-Public Use
  Company Number: CA-OPTIMER-20140241

PATIENT
  Age: 20 Year
  Sex: Female
  Weight: 61.7 kg

DRUGS (24)
  1. CIPRO [Concomitant]
     Active Substance: CIPROFLOXACIN HYDROCHLORIDE
     Indication: INFECTION
     Dosage: 500-MG-BID
     Route: 048
     Dates: start: 20140708, end: 20140721
  2. ONDANSETRON [Concomitant]
     Active Substance: ONDANSETRON
     Indication: ANTIEMETIC SUPPORTIVE CARE
     Dosage: 8-MG-Q8H PRN
     Route: 050
     Dates: start: 20140709
  3. SENOKOT-S [Concomitant]
     Active Substance: DOCUSATE SODIUM\SENNOSIDES
     Indication: CONSTIPATION
     Dosage: 1-2-TABLET-BID PRN
     Route: 048
     Dates: start: 20140716
  4. FIDAXOMICIN [Suspect]
     Active Substance: FIDAXOMICIN
     Dosage: 1 TABLET, QD
     Route: 048
     Dates: start: 20140731, end: 20140803
  5. URSODIOL. [Concomitant]
     Active Substance: URSODIOL
     Indication: PROPHYLAXIS
     Dosage: 250 AND 500-MG-250 PO AM AND 500 PO PM QD
     Route: 048
     Dates: start: 20140709
  6. HYDROCORTISON [Concomitant]
     Active Substance: HYDROCORTISONE
     Indication: PRURITUS
     Dosage: 1%--BID PRN
     Route: 061
     Dates: start: 20140729
  7. METHOTREXATE [Concomitant]
     Active Substance: METHOTREXATE
     Indication: PROPHYLAXIS AGAINST GRAFT VERSUS HOST DISEASE
     Dosage: 8.4-MG-DAY +1 DAY +3 DAY+6
     Route: 042
     Dates: start: 20140715, end: 20140720
  8. MEROPENEM. [Concomitant]
     Active Substance: MEROPENEM
     Indication: ANTIBIOTIC THERAPY
     Dosage: 1-MG-Q8H
     Route: 042
     Dates: start: 20140726, end: 20140731
  9. CIPRO [Concomitant]
     Active Substance: CIPROFLOXACIN HYDROCHLORIDE
     Indication: ANTIBIOTIC PROPHYLAXIS
     Dosage: 400-MG-BID
     Route: 042
     Dates: start: 20140725, end: 20140730
  10. FLUCONAZOLE. [Concomitant]
     Active Substance: FLUCONAZOLE
     Dosage: 400-MG-BID
     Route: 042
     Dates: start: 20140725, end: 20140814
  11. PANTOPRAZOLE [Concomitant]
     Active Substance: PANTOPRAZOLE SODIUM
     Indication: DYSPEPSIA
     Dosage: 40-MG-QD
     Route: 042
     Dates: start: 20140725, end: 20140731
  12. TACROLIMUS. [Concomitant]
     Active Substance: TACROLIMUS
     Indication: PROPHYLAXIS AGAINST GRAFT VERSUS HOST DISEASE
     Dosage: 0.73-MG/HR(0.00125MG/KG/HR)-MG/HR
     Route: 042
     Dates: start: 20140712
  13. PROCHLORPERAZINE. [Concomitant]
     Active Substance: PROCHLORPERAZINE
     Indication: ANTIEMETIC SUPPORTIVE CARE
     Dosage: 10-MG-Q4H PRN
     Route: 048
     Dates: start: 20140715
  14. FLUCONAZOLE. [Concomitant]
     Active Substance: FLUCONAZOLE
     Indication: ANTIFUNGAL PROPHYLAXIS
     Dosage: 400-MG-QD
     Route: 050
     Dates: start: 20140715, end: 20140724
  15. ACYCLOVIR. [Concomitant]
     Active Substance: ACYCLOVIR
     Indication: ANTIVIRAL PROPHYLAXIS
     Dosage: 800-MG-BID
     Route: 048
     Dates: start: 20140708, end: 20140724
  16. ACYCLOVIR. [Concomitant]
     Active Substance: ACYCLOVIR
     Dosage: 425-MG-Q12H
     Route: 042
     Dates: start: 20140725, end: 20140731
  17. LORAZEPAM. [Concomitant]
     Active Substance: LORAZEPAM
     Indication: ANTIEMETIC SUPPORTIVE CARE
     Dosage: 1-MG-Q8H
     Route: 048
     Dates: start: 20140720
  18. MORPHINE [Concomitant]
     Active Substance: MORPHINE
     Indication: ANALGESIC INTERVENTION SUPPORTIVE THERAPY
     Dosage: 5 -10-MG-Q4H PRN
     Route: 042
     Dates: start: 20140724
  19. DALTEPARIN [Concomitant]
     Active Substance: DALTEPARIN
     Indication: THROMBOSIS PROPHYLAXIS
     Dosage: 5000-UNITS-QD
     Route: 058
     Dates: start: 20140708, end: 20140814
  20. COLACE [Concomitant]
     Active Substance: DOCUSATE SODIUM
     Indication: CONSTIPATION PROPHYLAXIS
     Dosage: 200-MG-BID PRN
     Route: 048
     Dates: start: 20140715
  21. LAX-A-DAY [Concomitant]
     Indication: CONSTIPATION
     Dosage: 1-TABLET-BID
     Route: 048
     Dates: start: 20140730, end: 20140730
  22. RANITIDINE [Concomitant]
     Active Substance: RANITIDINE\RANITIDINE HYDROCHLORIDE
     Indication: DYSPEPSIA
     Dosage: 150-MG-BID
     Route: 048
     Dates: start: 20140722, end: 20140724
  23. FIDAXOMICIN [Suspect]
     Active Substance: FIDAXOMICIN
     Indication: PROPHYLAXIS
     Dosage: 1 TABLET, QD
     Route: 048
     Dates: start: 20140709, end: 20140724
  24. CODEINE [Concomitant]
     Active Substance: CODEINE
     Indication: ANALGESIC THERAPY
     Dosage: 30 - 60-MG-Q4H PRN
     Route: 048
     Dates: start: 20140722

REACTIONS (10)
  - Ascites [Not Recovered/Not Resolved]
  - Hypoxia [Not Recovered/Not Resolved]
  - Venoocclusive disease [Not Recovered/Not Resolved]
  - Colitis [Not Recovered/Not Resolved]
  - Hepatic function abnormal [Recovering/Resolving]
  - Aspartate aminotransferase increased [Not Recovered/Not Resolved]
  - Alanine aminotransferase increased [Not Recovered/Not Resolved]
  - Abdominal distension [Not Recovered/Not Resolved]
  - Rash [Not Recovered/Not Resolved]
  - Decreased appetite [Not Recovered/Not Resolved]

NARRATIVE: CASE EVENT DATE: 20140801
